FAERS Safety Report 9100106 (Version 1)
Quarter: 2013Q1

REPORT INFORMATION
  Report Type: Spontaneous
  Country: US (occurrence: US)
  Receive Date: 20130214
  Receipt Date: 20130214
  Transmission Date: 20140127
  Serious: Yes (Death)
  Sender: FDA-Public Use
  Company Number: US-PFIZER INC-2013057684

PATIENT
  Age: 41 Year
  Sex: Female

DRUGS (2)
  1. RAPAMUNE [Suspect]
     Indication: COMPLICATIONS OF TRANSPLANT SURGERY
     Dosage: 1 MG/ML, DAILY
     Route: 048
     Dates: start: 20121128
  2. VFEND [Suspect]
     Indication: COMPLICATIONS OF TRANSPLANT SURGERY
     Dosage: 200 MG, 2X/DAY
     Dates: start: 20121115

REACTIONS (1)
  - Death [Fatal]
